FAERS Safety Report 7249747-2 (Version None)
Quarter: 2011Q1

REPORT INFORMATION
  Report Type: 
  Country: None (occurrence: None)
  Receive Date: 20110128
  Receipt Date: 20091231
  Transmission Date: 20110831
  Serious: No
  Sender: FDA-Public Use
  Company Number: A0837424A

PATIENT
  Sex: Female

DRUGS (1)
  1. BUPROPION HYDROCHLORIDE [Suspect]
     Indication: ANTIDEPRESSANT THERAPY
     Route: 048

REACTIONS (1)
  - ADVERSE EVENT [None]
